FAERS Safety Report 7100178-5 (Version None)
Quarter: 2010Q4

REPORT INFORMATION
  Report Type: 
  Country: None (occurrence: None)
  Receive Date: 20101112
  Receipt Date: 20101026
  Transmission Date: 20110411
  Serious: No
  Sender: FDA-Public Use
  Company Number: A0874904A

PATIENT
  Age: 72 Year
  Sex: Male

DRUGS (14)
  1. CARVEDILOL [Suspect]
     Dosage: 25MG TWICE PER DAY
     Route: 048
     Dates: start: 20080601, end: 20080801
  2. COREG [Suspect]
     Dosage: 25MG TWICE PER DAY
     Route: 048
  3. COREG CR [Suspect]
     Dosage: 80MG PER DAY
     Route: 048
     Dates: start: 20100731
  4. ASPIRIN [Concomitant]
  5. LOVASTATIN [Concomitant]
  6. ALOPURINOL [Concomitant]
  7. OMEPRAZOLE [Concomitant]
  8. HYDROCHLOROTHIAZIDE [Concomitant]
  9. AMLODIPINE [Concomitant]
  10. ASCORBIC ACID [Concomitant]
  11. VITAMIN E [Concomitant]
  12. OMEGA FISH OIL [Concomitant]
  13. FLUTICASONE PROPIONATE [Concomitant]
  14. FEXOFENADINE HCL [Concomitant]

REACTIONS (2)
  - PRODUCT QUALITY ISSUE [None]
  - VENTRICULAR EXTRASYSTOLES [None]
